FAERS Safety Report 8560497-2 (Version None)
Quarter: 2012Q3

REPORT INFORMATION
  Report Type: 
  Country: None (occurrence: None)
  Receive Date: 20120802
  Receipt Date: 20120321
  Transmission Date: 20120928
  Serious: Yes (Hospitalization, Other)
  Sender: FDA-Public Use
  Company Number: US-BAYER-200934737NA

PATIENT
  Age: 46 Year
  Sex: Female
  Weight: 111.57 kg

DRUGS (4)
  1. LEVOTHYROXINE SODIUM [Concomitant]
     Dosage: UNK
     Dates: start: 20050101
  2. REMERON [Concomitant]
     Indication: DEPRESSION
  3. SYNTHROID [Concomitant]
  4. YAZ [Suspect]
     Indication: MOOD SWINGS
     Dosage: 1 DF (DAILY DOSE), QD,
     Dates: start: 20050301, end: 20090314

REACTIONS (9)
  - EMBOLIC STROKE [None]
  - PULMONARY EMBOLISM [None]
  - PAIN [None]
  - HEMIPLEGIA [None]
  - CEREBROVASCULAR ACCIDENT [None]
  - AMNESIA [None]
  - INJURY [None]
  - THYROID DISORDER [None]
  - DEEP VEIN THROMBOSIS [None]
